FAERS Safety Report 19367653 (Version 1)
Quarter: 2021Q2

REPORT INFORMATION
  Report Type: Spontaneous
  Country: CN (occurrence: CN)
  Receive Date: 20210603
  Receipt Date: 20210603
  Transmission Date: 20210717
  Serious: Yes (Hospitalization)
  Sender: FDA-Public Use
  Company Number: CN-PFIZER INC-2021585563

PATIENT
  Age: 53 Year
  Sex: Female
  Weight: 62 kg

DRUGS (2)
  1. ENDOXAN [CYCLOPHOSPHAMIDE] [Suspect]
     Active Substance: CYCLOPHOSPHAMIDE
     Indication: SYMPTOMATIC TREATMENT
     Dosage: 0.9 G, 1X/DAY
     Route: 041
     Dates: start: 20210423, end: 20210423
  2. PHARMORUBICIN [Suspect]
     Active Substance: EPIRUBICIN
     Indication: SYMPTOMATIC TREATMENT
     Dosage: 140 MG, 1X/DAY
     Route: 041
     Dates: start: 20210423, end: 20210423

REACTIONS (1)
  - Full blood count decreased [Recovering/Resolving]

NARRATIVE: CASE EVENT DATE: 20210501
